FAERS Safety Report 9784363 (Version 2)
Quarter: 2014Q1

REPORT INFORMATION
  Report Type: Spontaneous
  Country: US (occurrence: US)
  Receive Date: 20131226
  Receipt Date: 20140114
  Transmission Date: 20141002
  Serious: No
  Sender: FDA-Public Use
  Company Number: US-BIOGENIDEC-2013BI121390

PATIENT
  Age: 54 Year
  Sex: Female
  Weight: 72 kg

DRUGS (8)
  1. TECFIDERA [Suspect]
     Indication: MULTIPLE SCLEROSIS
     Route: 048
     Dates: start: 20131205
  2. TECFIDERA [Suspect]
     Indication: MULTIPLE SCLEROSIS
     Route: 048
     Dates: start: 20131205
  3. CALTRATE WITH VITAMIN D [Concomitant]
  4. IBUPROFEN [Concomitant]
  5. ZYRTEC [Concomitant]
  6. AGGRENOX [Concomitant]
  7. VITAMIN C [Concomitant]
  8. PEPCID [Concomitant]

REACTIONS (7)
  - Urine output increased [Unknown]
  - Dizziness [Unknown]
  - Feeling jittery [Unknown]
  - Flushing [Unknown]
  - Nausea [Not Recovered/Not Resolved]
  - Diarrhoea [Not Recovered/Not Resolved]
  - Abdominal discomfort [Not Recovered/Not Resolved]
